FAERS Safety Report 8482008-2 (Version None)
Quarter: 2012Q2

REPORT INFORMATION
  Report Type: 
  Country: None (occurrence: None)
  Receive Date: 20120626
  Receipt Date: 20120626
  Transmission Date: 20120825
  Serious: Yes (Other)
  Sender: FDA-Public Use
  Company Number: None

PATIENT
  Sex: Male

DRUGS (8)
  1. MONONITRATE [Concomitant]
  2. PROPRANOLOL [Concomitant]
  3. PLAVIX [Concomitant]
  4. CIPROFLOXACIN HCL [Suspect]
     Indication: LIMB INJURY
     Dosage: 500 MG, TWICE A DAY, PO
     Route: 048
     Dates: start: 20120622
  5. AMLD-EENAZP [Concomitant]
  6. ISOORBIDE [Concomitant]
  7. ASPIRIN [Concomitant]
  8. SIMVASTATIN [Concomitant]

REACTIONS (3)
  - ARTHRALGIA [None]
  - DYSPHONIA [None]
  - THROAT TIGHTNESS [None]
